FAERS Safety Report 6057415-8 (Version None)
Quarter: 2009Q1

REPORT INFORMATION
  Report Type: 
  Country: None (occurrence: None)
  Receive Date: 20090129
  Receipt Date: 20090121
  Transmission Date: 20090719
  Serious: Yes (Disabling)
  Sender: FDA-Public Use
  Company Number: US-BAYER-200911479NA

PATIENT
  Age: 65 Year
  Sex: Female

DRUGS (2)
  1. NEXAVAR [Suspect]
     Indication: METASTATIC RENAL CELL CARCINOMA
     Dosage: TOTAL DAILY DOSE: 800 MG  UNIT DOSE: 200 MG
     Route: 048
     Dates: start: 20081001
  2. BLOOD PRESSURE PILLS [Concomitant]

REACTIONS (9)
  - DIARRHOEA [None]
  - GLOSSODYNIA [None]
  - HYPERTENSION [None]
  - HYPOAESTHESIA [None]
  - MOBILITY DECREASED [None]
  - PAIN IN EXTREMITY [None]
  - RASH [None]
  - SKIN DISCOLOURATION [None]
  - SWOLLEN TONGUE [None]
